FAERS Safety Report 5393648-1 (Version None)
Quarter: 2007Q3

REPORT INFORMATION
  Report Type: 
  Country: None (occurrence: None)
  Receive Date: 20070723
  Receipt Date: 20061023
  Transmission Date: 20080115
  Serious: No
  Sender: FDA-Public Use
  Company Number: A0624629A

PATIENT
  Age: 72 Year
  Sex: Male

DRUGS (1)
  1. AVANDIA [Suspect]
     Indication: DRUG USE FOR UNKNOWN INDICATION
     Route: 048

REACTIONS (2)
  - CHEST DISCOMFORT [None]
  - JOINT SWELLING [None]
